FAERS Safety Report 6479517-4 (Version None)
Quarter: 2009Q4

REPORT INFORMATION
  Report Type: 
  Country: None (occurrence: None)
  Receive Date: 20091207
  Receipt Date: 20091207
  Transmission Date: 20100525
  Serious: Yes (Life-Threatening)
  Sender: FDA-Public Use
  Company Number: None

PATIENT
  Age: 72 Year
  Sex: Female
  Weight: 47.2 kg

DRUGS (2)
  1. LEVAQUIN [Suspect]
     Indication: PNEUMONIA
     Dosage: 750MG 148H IV
     Route: 042
     Dates: start: 20091128, end: 20091201
  2. ZOSYN [Suspect]
     Indication: PNEUMONIA
     Dosage: 3.375GM Q6H IV
     Route: 042
     Dates: start: 20091127, end: 20091130

REACTIONS (1)
  - PANCYTOPENIA [None]
